FAERS Safety Report 9668865 (Version 5)
Quarter: 2014Q1

REPORT INFORMATION
  Report Type: Report from Study
  Country: US (occurrence: US)
  Receive Date: 20131105
  Receipt Date: 20140213
  Transmission Date: 20141002
  Serious: Yes (Hospitalization, Other)
  Sender: FDA-Public Use
  Company Number: PHEH2013US016446

PATIENT
  Age: 63 Year
  Sex: Female
  Weight: 67.58 kg

DRUGS (40)
  1. TOBI [Suspect]
     Indication: BRONCHIECTASIS
     Dosage: UNK
     Dates: start: 20130610, end: 20130610
  2. TOBI [Suspect]
     Dosage: 1 DF, BID
     Route: 055
     Dates: start: 20130706
  3. TOBI [Suspect]
     Dosage: UKN, QD (REDUCED DOSE)
     Route: 055
  4. TOBI [Suspect]
     Dosage: 300MG  TWICE DAILY, ONE MONTH ON AND ONE MONTH OFF
     Route: 055
     Dates: start: 20131029
  5. FOSAMAX [Concomitant]
     Indication: OSTEOPOROSIS
     Dosage: 1 DF, WEEKLY
     Route: 048
  6. ELAVIL [Concomitant]
     Dosage: 30 MG, AT NIGHT
     Route: 048
     Dates: start: 20130902
  7. BROVANA [Concomitant]
     Dosage: 2 ML, BID
     Route: 055
  8. PULMICORT [Concomitant]
     Dosage: 2 DF, BID
     Route: 055
     Dates: start: 20130902
  9. CALCIUM CARBONATE [Concomitant]
     Dosage: 1 DF, UNK
     Route: 048
     Dates: start: 20130902
  10. CALCIUM CARBONATE [Concomitant]
     Dosage: 500 MG, UNK
  11. DEXILANT [Concomitant]
     Indication: GASTROOESOPHAGEAL REFLUX DISEASE
     Dosage: 1 DF, UNK
     Route: 048
     Dates: start: 20130902
  12. VOLTAREN [Concomitant]
     Dosage: 1 DF, BID
     Route: 048
     Dates: start: 20130902
  13. VITAMIN D2 [Concomitant]
     Dosage: 1 DF, WEEKLY
     Route: 048
  14. LASIX [Concomitant]
     Dosage: 1 DF, UNK
     Route: 048
  15. LIDODERM [Concomitant]
     Dosage: 1 DF, (1%)
     Route: 062
     Dates: start: 20130901
  16. AZULFIDINE [Concomitant]
     Dosage: 3 DF, TID
     Route: 048
     Dates: start: 20130902
  17. AZULFIDINE [Concomitant]
     Dosage: 1000 DF, TID
     Route: 048
  18. ULTRAM ER [Concomitant]
     Dosage: 1 DF, Q6H, AS NEEDED
     Route: 048
  19. LIMBITROL [Concomitant]
     Dosage: 2 DF (25/10 MG)
     Route: 048
  20. VIT C [Concomitant]
     Dosage: 2 DF, UNK
     Route: 048
  21. DESOWEN [Concomitant]
     Dosage: UKN, PRN
  22. PREMARIN [Concomitant]
     Dosage: 1 DF, UNK
     Route: 048
  23. DIFLUCAN [Concomitant]
     Dosage: 1 DF, UNK
     Route: 048
  24. IMODIUM [Concomitant]
     Dosage: 2 MG, UNK
     Route: 048
  25. PHENERGAN [Concomitant]
     Dosage: 1 DF4 TO 6 HOURS
     Route: 048
  26. PREVIDENT [Concomitant]
     Dosage: UNK, DAILY TOOTHPASTE
  27. KENALOG ORABASE [Concomitant]
     Dosage: 0.147 MG/GRAM, TOPICAL SPRAY
  28. TOCOPHERYL ACETATE [Concomitant]
     Dosage: 1 DF, UNK
     Route: 048
  29. CIPRO//CIPROFLOXACIN [Concomitant]
     Dosage: 750 MG, UNK
  30. DRISDOL [Concomitant]
     Dosage: 50000 DF, UNK
  31. TUSSIONEX [Concomitant]
     Dosage: UNK (8 TO 10MG/5 ML)
  32. LIBRAX [Concomitant]
     Dosage: UNK (5-2.5 MG CAPSULE)
  33. DAYPRO [Concomitant]
     Dosage: 600 MG, UNK
  34. PERCOCET [Concomitant]
     Dosage: UNK (10-325 MG
  35. VITAMIN B 12 [Concomitant]
     Dosage: 250 UG, UNK
  36. FOLVITE [Concomitant]
     Dosage: 400 UG, UNK
  37. FLEXERIL [Concomitant]
     Dosage: 10 MG, UNK
  38. AMITRIPTYLINE [Concomitant]
  39. DICLOFENAC [Concomitant]
  40. BLOCADREN [Concomitant]
     Dosage: 5 MG, TID
     Route: 048

REACTIONS (52)
  - Myocardial infarction [Unknown]
  - Stress cardiomyopathy [Recovered/Resolved]
  - Acute myocardial infarction [Unknown]
  - Chest pain [Unknown]
  - Anxiety [Unknown]
  - Musculoskeletal chest pain [Not Recovered/Not Resolved]
  - Cough [Not Recovered/Not Resolved]
  - Neck pain [Unknown]
  - Tenderness [Unknown]
  - Asthenia [Unknown]
  - Left ventricular dysfunction [Unknown]
  - Troponin increased [Unknown]
  - Ejection fraction decreased [Unknown]
  - Pneumonia [Unknown]
  - Lung infiltration [Unknown]
  - Rales [Unknown]
  - Migraine [Unknown]
  - Nausea [Unknown]
  - Headache [Unknown]
  - Dizziness [Unknown]
  - Irritable bowel syndrome [Unknown]
  - Diarrhoea [Recovered/Resolved]
  - Dehydration [Recovered/Resolved]
  - Somnolence [Recovering/Resolving]
  - Chronic obstructive pulmonary disease [Unknown]
  - Nervous system disorder [Unknown]
  - Orthostatic hypotension [Unknown]
  - White blood cell count decreased [Unknown]
  - Mood altered [Unknown]
  - Thinking abnormal [Unknown]
  - Bronchiectasis [Unknown]
  - Atopy [Unknown]
  - Dyspnoea [Unknown]
  - Hypoxia [Unknown]
  - Fatigue [Unknown]
  - Chest discomfort [Unknown]
  - Pneumonia pseudomonal [Unknown]
  - Hypernatraemia [Unknown]
  - Hyponatraemia [Unknown]
  - Hypomagnesaemia [Unknown]
  - Anaemia [Not Recovered/Not Resolved]
  - Bronchial secretion retention [Unknown]
  - Urinary retention [Unknown]
  - Pyrexia [Unknown]
  - Night sweats [Unknown]
  - Depression [Unknown]
  - Haemoptysis [Unknown]
  - Rhonchi [Unknown]
  - Pulmonary mass [Unknown]
  - Bronchial wall thickening [Unknown]
  - Productive cough [Unknown]
  - Incorrect dose administered [Unknown]
